FAERS Safety Report 10263619 (Version 1)
Quarter: 2014Q2

REPORT INFORMATION
  Report Type: Spontaneous
  Country: US (occurrence: US)
  Receive Date: 20140626
  Receipt Date: 20140626
  Transmission Date: 20141212
  Serious: No
  Sender: FDA-Public Use
  Company Number: US-009507513-1406USA009873

PATIENT
  Sex: Female

DRUGS (3)
  1. ISENTRESS [Suspect]
     Dosage: TOTAL DAILY DOSE 800
     Route: 048
  2. TENOFOVIR DISOPROXIL FUMARATE [Suspect]
     Dosage: TOTAL DAILY: 1
     Route: 048
  3. EMTRICITABINE (+) RILPIVIRINE HYDROCHLORIDE (+) TENOFOVIR DISOPROXIL F [Suspect]
     Dosage: TOTAL DAILY: 1
     Route: 048

REACTIONS (1)
  - Maternal exposure before pregnancy [Recovered/Resolved]
